FAERS Safety Report 5492035-5 (Version None)
Quarter: 2007Q4

REPORT INFORMATION
  Report Type: 
  Country: None (occurrence: None)
  Receive Date: 20071018
  Receipt Date: 20071018
  Transmission Date: 20080405
  Serious: Yes (Hospitalization)
  Sender: FDA-Public Use
  Company Number: None

PATIENT
  Age: 66 Year
  Sex: Female
  Weight: 95.2554 kg

DRUGS (7)
  1. PIOGLITAZONE HCL [Suspect]
     Indication: TYPE 2 DIABETES MELLITUS
     Dosage: 15 MG QOD PO
     Route: 048
  2. GLYBURIDE [Concomitant]
  3. GLARGINE INSULIN [Concomitant]
  4. FUROSEMIDE [Concomitant]
  5. PROPGRANOLOL [Concomitant]
  6. COZAAR [Concomitant]
  7. SYNTHROID [Concomitant]

REACTIONS (5)
  - CARDIAC FAILURE CONGESTIVE [None]
  - DYSPNOEA [None]
  - HYPOALBUMINAEMIA [None]
  - OEDEMA PERIPHERAL [None]
  - WEIGHT INCREASED [None]
